FAERS Safety Report 12986532 (Version 1)
Quarter: 2016Q4

REPORT INFORMATION
  Report Type: Report from Study
  Country: FR (occurrence: FR)
  Receive Date: 20161130
  Receipt Date: 20161130
  Transmission Date: 20170207
  Serious: Yes (Hospitalization, Other)
  Sender: FDA-Public Use
  Company Number: FR-REGENERON PHARMACEUTICALS, INC.-2016-24014

PATIENT

DRUGS (8)
  1. EYLEA [Suspect]
     Active Substance: AFLIBERCEPT
     Dosage: INJECTION IN LEFT EYE (VISIT 1)
     Dates: start: 20160129, end: 20160129
  2. EYLEA [Suspect]
     Active Substance: AFLIBERCEPT
     Dosage: INJECTION IN LEFT EYE (VISIT 2)
     Dates: start: 20160229, end: 20160229
  3. EYLEA [Suspect]
     Active Substance: AFLIBERCEPT
     Dosage: INJECTION IN LEFT EYE (VISIT 9)
     Dates: start: 20160808, end: 20160808
  4. EYLEA [Suspect]
     Active Substance: AFLIBERCEPT
     Indication: NEOVASCULAR AGE-RELATED MACULAR DEGENERATION
     Dosage: INJECTION IN LEFT EYE (INITIAL VISIT)
     Dates: start: 20151218, end: 20151218
  5. EYLEA [Suspect]
     Active Substance: AFLIBERCEPT
     Dosage: INJECTION IN LEFT EYE (VISIT 6)
     Dates: start: 20160614, end: 20160614
  6. KARDEGIC [Concomitant]
     Active Substance: ASPIRIN LYSINE
     Indication: PRODUCT USED FOR UNKNOWN INDICATION
  7. EYLEA [Suspect]
     Active Substance: AFLIBERCEPT
     Dosage: INJECTION IN LEFT EYE (VISIT 4)
     Dates: start: 20160415, end: 20160415
  8. EYLEA [Suspect]
     Active Substance: AFLIBERCEPT
     Dosage: INJECTION IN LEFT EYE (VISIT 11)
     Dates: start: 20161005, end: 20161005

REACTIONS (1)
  - Cataract operation [Recovered/Resolved]

NARRATIVE: CASE EVENT DATE: 20160620
